FAERS Safety Report 21765079 (Version 2)
Quarter: 2023Q1

REPORT INFORMATION
  Report Type: Spontaneous
  Country: US (occurrence: US)
  Receive Date: 20221222
  Receipt Date: 20230131
  Transmission Date: 20230418
  Serious: No
  Sender: FDA-Public Use
  Company Number: US-BIOVITRUM-2022US15240

PATIENT
  Sex: Female
  Weight: 4 kg

DRUGS (8)
  1. SYNAGIS [Suspect]
     Active Substance: PALIVIZUMAB
     Indication: Bronchopulmonary dysplasia
     Dates: start: 20220717
  2. IRON\VITAMINS [Concomitant]
     Active Substance: IRON\VITAMINS
     Dosage: 250-50/ML DROPS
  3. FAMOTIDINE [Concomitant]
     Active Substance: FAMOTIDINE
     Dosage: 40MG/5ML SUSP RECON
  4. LACTULOSE [Concomitant]
     Active Substance: LACTULOSE
     Dosage: 10 G/15 ML SOLUTION
  5. VITAMINS [Concomitant]
     Active Substance: VITAMINS
     Dosage: 250-50/ML DROPS
  6. SYNAGIS [Suspect]
     Active Substance: PALIVIZUMAB
     Indication: Chronic respiratory disease
  7. SYNAGIS [Suspect]
     Active Substance: PALIVIZUMAB
     Indication: Premature baby
  8. OXYGEN [Concomitant]
     Active Substance: OXYGEN

REACTIONS (1)
  - Pyrexia [Recovered/Resolved]
